FAERS Safety Report 14306238 (Version 2)
Quarter: 2018Q1

REPORT INFORMATION
  Report Type: Spontaneous
  Country: US (occurrence: US)
  Receive Date: 20171219
  Receipt Date: 20180204
  Transmission Date: 20180509
  Serious: Yes (Hospitalization)
  Sender: FDA-Public Use
  Company Number: US-009507513-1712USA006143

PATIENT
  Age: 75 Year
  Sex: Male

DRUGS (2)
  1. INTRON A [Suspect]
     Active Substance: INTERFERON ALFA-2B
     Dosage: 50 MILLION IU SDV, QW FOR 6 WEEKS
     Dates: start: 20170803
  2. INTRON A [Suspect]
     Active Substance: INTERFERON ALFA-2B
     Indication: BLADDER CANCER
     Dosage: 50 MILLION IU SDV, QW FOR 6 WEEKS
     Dates: start: 20170803

REACTIONS (1)
  - Adverse event [Unknown]

NARRATIVE: CASE EVENT DATE: 20171208
